FAERS Safety Report 9951297 (Version 1)
Quarter: 2014Q1

REPORT INFORMATION
  Report Type: Report from Study
  Country: US (occurrence: US)
  Receive Date: 20140304
  Receipt Date: 20140304
  Transmission Date: 20141002
  Serious: No
  Sender: FDA-Public Use
  Company Number: US-ABBVIE-13P-163-1072272-00

PATIENT
  Age: 49 Year
  Sex: Male
  Weight: 88.53 kg

DRUGS (1)
  1. HUMIRA [Suspect]
     Indication: PSORIASIS
     Dates: start: 201103

REACTIONS (4)
  - Incorrect route of drug administration [Recovered/Resolved]
  - Device malfunction [Recovered/Resolved]
  - Nerve compression [Recovered/Resolved]
  - Wrong technique in drug usage process [Recovered/Resolved]
